FAERS Safety Report 9155735 (Version 1)
Quarter: 2013Q1

REPORT INFORMATION
  Report Type: Spontaneous
  Country: GB (occurrence: GB)
  Receive Date: 20130311
  Receipt Date: 20130311
  Transmission Date: 20140127
  Serious: Yes (Other)
  Sender: FDA-Public Use
  Company Number: PHHY2013GB022486

PATIENT
  Age: 44 Year
  Sex: Male

DRUGS (1)
  1. PHENOXYMETHYLPENICILLIN [Suspect]
     Dates: start: 20130225

REACTIONS (3)
  - Hypersomnia [Unknown]
  - Pyrexia [Unknown]
  - Hypersensitivity [Unknown]
